FAERS Safety Report 9337873 (Version 1)
Quarter: 2013Q2

REPORT INFORMATION
  Report Type: Spontaneous
  Country: IT (occurrence: IT)
  Receive Date: 20130608
  Receipt Date: 20130608
  Transmission Date: 20140414
  Serious: Yes (Other)
  Sender: FDA-Public Use
  Company Number: IT-PFIZER INC-2013163922

PATIENT
  Age: 80 Year
  Sex: Female

DRUGS (6)
  1. LYRICA [Suspect]
     Indication: NEUROPATHY PERIPHERAL
     Dosage: 25 MG, 2X/DAY
  2. LYRICA [Suspect]
     Dosage: 25 MG, 1X/DAY
  3. LYRICA [Suspect]
     Dosage: 25 MG, 3 OR 4 TIMES A DAY
  4. PLAVIX [Concomitant]
  5. LOSARTAN [Concomitant]
     Indication: HYPERTENSION
     Dosage: TAKEN IN THE MORNING
  6. LOBIVON [Concomitant]
     Indication: HYPERTENSION
     Dosage: TAKEN AT 6:00 PM

REACTIONS (6)
  - Poisoning [Recovered/Resolved]
  - Breast swelling [Not Recovered/Not Resolved]
  - Abdominal distension [Not Recovered/Not Resolved]
  - Weight increased [Not Recovered/Not Resolved]
  - Ocular discomfort [Not Recovered/Not Resolved]
  - Burning sensation [Not Recovered/Not Resolved]
